FAERS Safety Report 14731852 (Version 1)
Quarter: 2018Q2

REPORT INFORMATION
  Report Type: Spontaneous
  Country: US (occurrence: US)
  Receive Date: 20180408
  Receipt Date: 20180408
  Transmission Date: 20180711
  Serious: No
  Sender: FDA-Public Use
  Company Number: US-TEVA-2018-US-878015

PATIENT
  Sex: Male

DRUGS (1)
  1. BUDESONIDE. [Suspect]
     Active Substance: BUDESONIDE
     Indication: DYSPNOEA
     Dosage: INHALATION SUSPENSION, DOSE STRENGTH:  0.5 MG/2 ML
     Route: 065
     Dates: start: 201711

REACTIONS (2)
  - Product quality issue [Unknown]
  - Drug ineffective [Unknown]
